FAERS Safety Report 17233485 (Version 1)
Quarter: 2020Q1

REPORT INFORMATION
  Report Type: Spontaneous
  Country: US (occurrence: US)
  Receive Date: 20200104
  Receipt Date: 20200104
  Transmission Date: 20200409
  Serious: No
  Sender: FDA-Public Use
  Company Number: US-TEVA-2019-US-1150948

PATIENT
  Age: 68 Year
  Sex: Male

DRUGS (1)
  1. AUSTEDO [Suspect]
     Active Substance: DEUTETRABENAZINE
     Dosage: 12 MILLIGRAM DAILY; 6 MG TWICE A DAY
     Route: 065
     Dates: start: 201911

REACTIONS (4)
  - Product dose omission [Unknown]
  - Balance disorder [Unknown]
  - Dyskinesia [Unknown]
  - Walking disability [Unknown]

NARRATIVE: CASE EVENT DATE: 201912
